FAERS Safety Report 14806310 (Version 1)
Quarter: 2018Q2

REPORT INFORMATION
  Report Type: Spontaneous
  Country: DE (occurrence: DE)
  Receive Date: 20180425
  Receipt Date: 20180425
  Transmission Date: 20180711
  Serious: Yes (Other)
  Sender: FDA-Public Use
  Company Number: DE-TEVA-2018-DE-881145

PATIENT
  Sex: Male

DRUGS (5)
  1. SALBUTAMOL-RATIOPHARM N DOSIERAEROSOL [Suspect]
     Active Substance: ALBUTEROL
     Route: 055
  2. ANORO 55 MICROG/22 MICROG [Concomitant]
  3. RAMIPRIL 5 MG [Concomitant]
     Active Substance: RAMIPRIL
  4. TORASEMID 10 MG [Concomitant]
  5. PREDNISOLON 5 MG [Concomitant]

REACTIONS (2)
  - Inappropriate schedule of drug administration [Unknown]
  - Drug abuse [Unknown]
